FAERS Safety Report 23128394 (Version 1)
Quarter: 2023Q4

REPORT INFORMATION
  Report Type: Spontaneous
  Country: CN (occurrence: CN)
  Receive Date: 20231031
  Receipt Date: 20231031
  Transmission Date: 20240110
  Serious: Yes (Hospitalization)
  Sender: FDA-Public Use
  Company Number: CN-Merck Healthcare KGaA-2023483458

PATIENT
  Age: 37 Year
  Sex: Female
  Weight: 59 kg

DRUGS (10)
  1. LUVERIS [Suspect]
     Active Substance: LUTROPIN ALFA
     Indication: In vitro fertilisation
     Route: 058
     Dates: start: 20230924, end: 20230928
  2. LUVERIS [Suspect]
     Active Substance: LUTROPIN ALFA
     Indication: Ovulation induction
  3. FOLLITROPIN BETA [Suspect]
     Active Substance: FOLLITROPIN BETA
     Indication: In vitro fertilisation
     Route: 058
     Dates: start: 20230918, end: 20230920
  4. FOLLITROPIN BETA [Suspect]
     Active Substance: FOLLITROPIN BETA
     Indication: Ovulation induction
  5. UROFOLLITROPIN [Suspect]
     Active Substance: UROFOLLITROPIN
     Indication: In vitro fertilisation
     Route: 030
     Dates: start: 20230924, end: 20230928
  6. UROFOLLITROPIN [Suspect]
     Active Substance: UROFOLLITROPIN
     Indication: Ovulation induction
  7. MENOTROPINS [Suspect]
     Active Substance: MENOTROPINS
     Indication: In vitro fertilisation
     Route: 030
     Dates: start: 20230924, end: 20230928
  8. MENOTROPINS [Suspect]
     Active Substance: MENOTROPINS
     Indication: Ovulation induction
  9. CHORIONIC GONADOTROPIN [Suspect]
     Active Substance: CHORIOGONADOTROPIN ALFA
     Indication: In vitro fertilisation
     Route: 030
     Dates: start: 20230928, end: 20230928
  10. CHORIONIC GONADOTROPIN [Suspect]
     Active Substance: CHORIOGONADOTROPIN ALFA
     Indication: Ovulation induction

REACTIONS (1)
  - Ovarian hyperstimulation syndrome [Recovering/Resolving]

NARRATIVE: CASE EVENT DATE: 20231013
